FAERS Safety Report 6161226-2 (Version None)
Quarter: 2009Q2

REPORT INFORMATION
  Report Type: 
  Country: None (occurrence: None)
  Receive Date: 20090417
  Receipt Date: 20090417
  Transmission Date: 20091009
  Serious: Yes (Hospitalization)
  Sender: FDA-Public Use
  Company Number: None

PATIENT
  Age: 56 Year
  Sex: Female
  Weight: 116.5744 kg

DRUGS (3)
  1. CARBOPLATIN [Suspect]
     Indication: BREAST CANCER
     Dosage: 6 AUC Q 3WKS IV
     Route: 042
     Dates: start: 20090206, end: 20090403
  2. ABRAXANE [Suspect]
     Indication: BREAST CANCER
     Dosage: 100MG/M2 EVERY WEEK IV
     Route: 042
     Dates: start: 20090220, end: 20090403
  3. HERCEPTIN [Suspect]
     Indication: BREAST CANCER
     Dosage: 2MG/ KG Q WEEK IV
     Route: 042
     Dates: start: 20090206, end: 20090403

REACTIONS (1)
  - CENTRAL LINE INFECTION [None]
